FAERS Safety Report 15757245 (Version 1)
Quarter: 2018Q4

REPORT INFORMATION
  Report Type: Spontaneous
  Country: US (occurrence: US)
  Receive Date: 20181224
  Receipt Date: 20181224
  Transmission Date: 20190205
  Serious: Yes (Hospitalization)
  Sender: FDA-Public Use
  Company Number: None

PATIENT
  Sex: Male

DRUGS (11)
  1. ZOCOR [Concomitant]
     Active Substance: SIMVASTATIN
  2. SILDENAFIL. [Suspect]
     Active Substance: SILDENAFIL
     Indication: PULMONARY ARTERIAL HYPERTENSION
     Route: 048
     Dates: start: 20130307
  3. NOVOLOG [Concomitant]
     Active Substance: INSULIN ASPART
  4. POTASSIUM [Concomitant]
     Active Substance: POTASSIUM
  5. PEPCID [Concomitant]
     Active Substance: FAMOTIDINE
  6. CARAFATE [Concomitant]
     Active Substance: SUCRALFATE
  7. CYCLOBENZAPR [Concomitant]
     Active Substance: CYCLOBENZAPRINE
  8. FERROUS SULF [Concomitant]
     Active Substance: FERROUS SULFATE
  9. GABAPENTIN. [Concomitant]
     Active Substance: GABAPENTIN
  10. LANTUS [Concomitant]
     Active Substance: INSULIN GLARGINE
  11. VITAMIN D [Concomitant]
     Active Substance: CHOLECALCIFEROL

REACTIONS (3)
  - Hospitalisation [None]
  - Insurance issue [None]
  - Therapy cessation [None]
